FAERS Safety Report 9416233 (Version 1)
Quarter: 2013Q3

REPORT INFORMATION
  Report Type: Spontaneous
  Country: US (occurrence: None)
  Receive Date: 20130723
  Receipt Date: 20130723
  Transmission Date: 20140515
  Serious: Yes (Hospitalization)
  Sender: FDA-Public Use
  Company Number: None

PATIENT
  Age: 67 Year
  Sex: Female

DRUGS (10)
  1. PHENYTOIN [Suspect]
     Indication: CONVULSION PROPHYLAXIS
     Route: 048
  2. PHENYTOIN CHEWABLE TABLETS USP [Suspect]
     Route: 048
  3. CARBAMAZEPINE [Concomitant]
  4. CALCIUM HYDROXYZINE [Concomitant]
  5. SIMVASTATIN [Concomitant]
  6. VITAMIN D [Concomitant]
  7. ALENDRONATE [Concomitant]
  8. ASPERCREME [Concomitant]
  9. PRN LOPERAMIDE [Concomitant]
  10. TRIAMCINOLONE CREAM [Concomitant]

REACTIONS (7)
  - Fall [None]
  - Asthenia [None]
  - Feeling jittery [None]
  - Gait disturbance [None]
  - Toxicity to various agents [None]
  - Hyperglycaemia [None]
  - Drug level increased [None]
